FAERS Safety Report 15842019 (Version 1)
Quarter: 2019Q1

REPORT INFORMATION
  Report Type: Spontaneous
  Country: US (occurrence: US)
  Receive Date: 20190117
  Receipt Date: 20190117
  Transmission Date: 20190417
  Serious: Yes (Other)
  Sender: FDA-Public Use
  Company Number: None

PATIENT
  Age: 74 Year
  Sex: Male
  Weight: 75 kg

DRUGS (10)
  1. XARELTO [Suspect]
     Active Substance: RIVAROXABAN
     Indication: ATRIAL FIBRILLATION
     Route: 048
     Dates: start: 20150501, end: 20190117
  2. PREDNISONE 10MG TAB [Concomitant]
  3. LOMOTIL 2.5MG/0.025MG TAB [Concomitant]
  4. XARELTO [Suspect]
     Active Substance: RIVAROXABAN
     Indication: PULMONARY EMBOLISM
     Route: 048
     Dates: start: 20150501, end: 20190117
  5. VITAMIN D3 2000 IU CAPS [Concomitant]
  6. OXYCODONE 5MG TAB [Concomitant]
  7. METOPROLOL TARTRATE 100MG TABLET [Concomitant]
     Active Substance: METOPROLOL TARTRATE
  8. XARELTO [Suspect]
     Active Substance: RIVAROXABAN
     Indication: DEEP VEIN THROMBOSIS
     Route: 048
     Dates: start: 20150501, end: 20190117
  9. SERTRALINE 150MG TAB [Concomitant]
  10. TAMSULOSIN 0.4MG CAPS [Concomitant]

REACTIONS (2)
  - Deep vein thrombosis [None]
  - Disease recurrence [None]

NARRATIVE: CASE EVENT DATE: 20190117
